FAERS Safety Report 7709881-7 (Version None)
Quarter: 2011Q3

REPORT INFORMATION
  Report Type: 
  Country: None (occurrence: None)
  Receive Date: 20110825
  Receipt Date: 20110811
  Transmission Date: 20111222
  Serious: Yes (Life-Threatening, Hospitalization, Other)
  Sender: FDA-Public Use
  Company Number: DE-ACTELION-A-CH2011-49811

PATIENT
  Sex: Female
  Weight: 54 kg

DRUGS (10)
  1. TRACLEER [Suspect]
     Indication: PULMONARY ARTERIAL HYPERTENSION
     Dosage: 125 MG, BID
     Route: 048
     Dates: start: 20110326, end: 20110604
  2. PREDNISONE [Concomitant]
  3. CREON [Concomitant]
  4. CORVATON [Concomitant]
  5. MARCUMAR [Concomitant]
  6. BISOPROLOL FUMARATE [Concomitant]
  7. CYCLOPHOSPHAMIDE [Concomitant]
  8. TRACLEER [Suspect]
     Dosage: 62.5 MG, BID
     Route: 048
     Dates: start: 20110312, end: 20110325
  9. DIGIMERCK [Concomitant]
  10. VOLTAREN [Concomitant]

REACTIONS (9)
  - PNEUMONIA [None]
  - MECHANICAL VENTILATION [None]
  - COMA [None]
  - RESPIRATORY FAILURE [None]
  - LIVER FUNCTION TEST ABNORMAL [None]
  - ASPARTATE AMINOTRANSFERASE INCREASED [None]
  - GAMMA-GLUTAMYLTRANSFERASE INCREASED [None]
  - ALANINE AMINOTRANSFERASE INCREASED [None]
  - ENDOTRACHEAL INTUBATION [None]
